FAERS Safety Report 6690847-3 (Version None)
Quarter: 2010Q2

REPORT INFORMATION
  Report Type: 
  Country: None (occurrence: None)
  Receive Date: 20100421
  Receipt Date: 20060918
  Transmission Date: 20101027
  Serious: Yes (Other)
  Sender: FDA-Public Use
  Company Number: HQWYE651717AUG06

PATIENT
  Sex: Male

DRUGS (6)
  1. BENEFIX [Suspect]
     Indication: FACTOR IX DEFICIENCY
     Route: 042
     Dates: start: 20060522, end: 20060522
  2. BENEFIX [Suspect]
     Dosage: DOSE DECREASED TO 3000 IU
     Route: 042
  3. GLYCERYL TRINITRATE [Concomitant]
     Indication: ANGINA PECTORIS
  4. SIMVASTATIN [Concomitant]
     Indication: HYPERCHOLESTEROLAEMIA
     Route: 048
  5. AMILORIDE HYDROCHLORIDE [Concomitant]
     Indication: DIURETIC THERAPY
     Dosage: 2.5 MG / 25 MG FOR ^YEARS^
     Route: 048
  6. ATENOLOL [Concomitant]
     Route: 048

REACTIONS (1)
  - ANGINA PECTORIS [None]
